FAERS Safety Report 7051379-6 (Version None)
Quarter: 2010Q4

REPORT INFORMATION
  Report Type: 
  Country: None (occurrence: None)
  Receive Date: 20101019
  Receipt Date: 20101014
  Transmission Date: 20110411
  Serious: Yes (Hospitalization)
  Sender: FDA-Public Use
  Company Number: AU-SANOFI-AVENTIS-2010SA044651

PATIENT
  Age: 51 Year
  Sex: Female
  Weight: 164 kg

DRUGS (15)
  1. DOCETAXEL [Suspect]
     Route: 041
     Dates: start: 20100503, end: 20100503
  2. DOCETAXEL [Suspect]
     Route: 041
     Dates: start: 20100708, end: 20100708
  3. BLINDED THERAPY [Suspect]
     Indication: FATIGUE
     Route: 048
     Dates: start: 20100711, end: 20100726
  4. XELODA [Suspect]
     Route: 048
     Dates: start: 20100503
  5. XELODA [Suspect]
     Route: 048
     Dates: start: 20100708, end: 20100721
  6. OXYCONTIN [Concomitant]
     Route: 048
     Dates: start: 20071201
  7. ENDONE [Concomitant]
     Route: 048
     Dates: start: 20100301
  8. ZOMETA [Concomitant]
     Route: 041
     Dates: start: 20051121
  9. MAXOLON [Concomitant]
     Dosage: 10 MG IV DAY 1 CYCLES 1-8
     Route: 041
     Dates: start: 20100503
  10. MAXOLON [Concomitant]
     Route: 041
     Dates: start: 20100708, end: 20100708
  11. DEXAMETHASONE [Concomitant]
     Dosage: 16 MG PO DAYS -1, 1 AND 2 CYCLES 1-8
     Route: 048
     Dates: start: 20100502
  12. DEXAMETHASONE [Concomitant]
     Indication: SPINAL CORD COMPRESSION
     Dosage: 16 MG PO DAYS -1, 1 AND 2 CYCLES 1-8
     Route: 048
     Dates: start: 20100502
  13. DEXAMETHASONE [Concomitant]
     Route: 048
     Dates: start: 20100707, end: 20100709
  14. DEXAMETHASONE [Concomitant]
     Route: 048
     Dates: start: 20100707, end: 20100709
  15. CLEXANE [Concomitant]
     Route: 058
     Dates: start: 20100727

REACTIONS (3)
  - GUILLAIN-BARRE SYNDROME [None]
  - OEDEMA PERIPHERAL [None]
  - SENSORY DISTURBANCE [None]
